FAERS Safety Report 12938630 (Version 2)
Quarter: 2017Q2

REPORT INFORMATION
  Report Type: Report from Study
  Country: DE (occurrence: DE)
  Receive Date: 20161114
  Receipt Date: 20170404
  Transmission Date: 20170830
  Serious: Yes (Hospitalization)
  Sender: FDA-Public Use
  Company Number: DE-PFIZER INC-2016520642

PATIENT
  Age: 84 Year
  Sex: Female

DRUGS (12)
  1. ENBREL [Suspect]
     Active Substance: ETANERCEPT
     Dosage: UNK
     Dates: end: 20160930
  2. CALCILAC [Concomitant]
     Active Substance: CALCIUM CARBONATE
  3. RAMIPRIL. [Concomitant]
     Active Substance: RAMIPRIL
  4. NOVAMIN (METAMIZOLE SODIUM) [Concomitant]
     Active Substance: METAMIZOLE SODIUM
  5. DUROGESIC [Concomitant]
     Active Substance: FENTANYL
  6. METOPROLOL. [Concomitant]
     Active Substance: METOPROLOL
  7. DEKRISTOL [Concomitant]
     Active Substance: CHOLECALCIFEROL
  8. PREDNISOLONE. [Concomitant]
     Active Substance: PREDNISOLONE
  9. MOVICOL [Concomitant]
     Active Substance: POLYETHYLENE GLYCOL 3350\POTASSIUM CHLORIDE\SODIUM BICARBONATE\SODIUM CHLORIDE
  10. CLEXANE [Concomitant]
     Active Substance: ENOXAPARIN SODIUM
  11. LANTAREL [Suspect]
     Active Substance: METHOTREXATE SODIUM
     Dosage: UNK
  12. FALITHROM [Concomitant]
     Active Substance: PHENPROCOUMON

REACTIONS (1)
  - Urosepsis [Recovered/Resolved]

NARRATIVE: CASE EVENT DATE: 20161005
